FAERS Safety Report 12617626 (Version 4)
Quarter: 2017Q1

REPORT INFORMATION
  Report Type: Spontaneous
  Country: US (occurrence: US)
  Receive Date: 20160803
  Receipt Date: 20170227
  Transmission Date: 20170428
  Serious: Yes (Other)
  Sender: FDA-Public Use
  Company Number: US-PFIZER INC-2016338537

PATIENT
  Age: 68 Year
  Sex: Female

DRUGS (1)
  1. XELJANZ [Suspect]
     Active Substance: TOFACITINIB CITRATE
     Dosage: 5 MG, UNK
     Dates: end: 20160721

REACTIONS (4)
  - Foot deformity [Unknown]
  - Pneumonia [Unknown]
  - Rheumatoid arthritis [Unknown]
  - Rash [Unknown]

NARRATIVE: CASE EVENT DATE: 20160721
